FAERS Safety Report 7585559-8 (Version None)
Quarter: 2011Q2

REPORT INFORMATION
  Report Type: 
  Country: None (occurrence: None)
  Receive Date: 20110531
  Receipt Date: 20100125
  Transmission Date: 20111010
  Serious: Yes (Life-Threatening)
  Sender: FDA-Public Use
  Company Number: 476228

PATIENT
  Sex: Female

DRUGS (1)
  1. LORAZEPAM [Suspect]
     Indication: CONVULSION
     Dates: start: 20090101, end: 20090101

REACTIONS (1)
  - DRUG ADMINISTRATION ERROR [None]
